FAERS Safety Report 12260879 (Version 1)
Quarter: 2016Q2

REPORT INFORMATION
  Report Type: Spontaneous
  Country: TR (occurrence: TR)
  Receive Date: 20160412
  Receipt Date: 20160412
  Transmission Date: 20160815
  Serious: Yes (Death, Other)
  Sender: FDA-Public Use
  Company Number: TR-ARBOR PHARMACEUTICALS, LLC-TR-2016ARB000273

PATIENT
  Age: 23 Year
  Sex: Female

DRUGS (2)
  1. FLECAINIDE [Suspect]
     Active Substance: FLECAINIDE
     Indication: PRODUCT USED FOR UNKNOWN INDICATION
     Dosage: UNK
  2. SOTALOL HYDROCHLORIDE. [Suspect]
     Active Substance: SOTALOL HYDROCHLORIDE
     Indication: PRODUCT USED FOR UNKNOWN INDICATION
     Dosage: UNK

REACTIONS (5)
  - Toxicity to various agents [Fatal]
  - Cardiac arrest [Not Recovered/Not Resolved]
  - Coma [Not Recovered/Not Resolved]
  - Intentional overdose [Fatal]
  - Completed suicide [Fatal]
